FAERS Safety Report 25490032 (Version 6)
Quarter: 2025Q4

REPORT INFORMATION
  Report Type: Spontaneous
  Country: CA (occurrence: CA)
  Receive Date: 20250628
  Receipt Date: 20251006
  Transmission Date: 20260118
  Serious: Yes (Other)
  Sender: CELLTRION
  Company Number: CA-PFIZER INC-202500126703

PATIENT

DRUGS (4)
  1. INFLECTRA [Suspect]
     Active Substance: INFLIXIMAB-DYYB
     Indication: Colitis ulcerative
     Dosage: 800 MG, EVERY 4 WEEKS
     Dates: start: 20250619
  2. INFLECTRA [Suspect]
     Active Substance: INFLIXIMAB-DYYB
     Dosage: 800 MG, AFTER 4 WEEKS AND 1 DAY
     Dates: start: 20250718
  3. INFLECTRA [Suspect]
     Active Substance: INFLIXIMAB-DYYB
     Dosage: 800 MG, EVERY 4 WEEKS
     Dates: start: 20250815
  4. INFLECTRA [Suspect]
     Active Substance: INFLIXIMAB-DYYB
     Dosage: 800 MG, 4 WEEKS AND 3 DAYS(EVERY 4 WEEK)
     Dates: start: 20250915

REACTIONS (7)
  - Blood pressure fluctuation [Not Recovered/Not Resolved]
  - Arthralgia [Unknown]
  - Blood pressure increased [Unknown]
  - Dizziness [Unknown]
  - Heart rate decreased [Unknown]
  - Oedema peripheral [Unknown]
  - Somnolence [Unknown]

NARRATIVE: CASE EVENT DATE: 20250619
